FAERS Safety Report 6924344-4 (Version None)
Quarter: 2010Q3

REPORT INFORMATION
  Report Type: 
  Country: None (occurrence: None)
  Receive Date: 20100811
  Receipt Date: 20100811
  Transmission Date: 20110219
  Serious: No
  Sender: FDA-Public Use
  Company Number: None

PATIENT
  Sex: Female
  Weight: 60.782 kg

DRUGS (1)
  1. NEOSPORIN [Suspect]
     Indication: THERMAL BURN
     Dosage: TOPICALLY DAILY
     Dates: start: 20071021, end: 20071120

REACTIONS (3)
  - APPLICATION SITE ERYTHEMA [None]
  - APPLICATION SITE PRURITUS [None]
  - DERMATITIS CONTACT [None]
